FAERS Safety Report 17244307 (Version 5)
Quarter: 2021Q2

REPORT INFORMATION
  Report Type: Spontaneous
  Country: US (occurrence: US)
  Receive Date: 20200107
  Receipt Date: 20210521
  Transmission Date: 20210716
  Serious: Yes (Other)
  Sender: FDA-Public Use
  Company Number: US-GILEAD-2019-0444766

PATIENT
  Age: 46 Year
  Sex: Female

DRUGS (59)
  1. ATRIPLA [Suspect]
     Active Substance: EFAVIRENZ\EMTRICITABINE\TENOFOVIR DISOPROXIL FUMARATE
     Dosage: UNK
     Route: 048
     Dates: start: 20091128, end: 20100707
  2. NYSTATIN. [Concomitant]
     Active Substance: NYSTATIN
  3. ALBUTEROL SULFATE. [Concomitant]
     Active Substance: ALBUTEROL SULFATE
  4. PROVENTIL HFA [Concomitant]
     Active Substance: ALBUTEROL SULFATE
  5. FERROUS SULFATE. [Concomitant]
     Active Substance: FERROUS SULFATE
  6. SULFAMETHOXAZOLE AND TRIMETHOPRIM [Concomitant]
     Active Substance: SULFAMETHOXAZOLE\TRIMETHOPRIM
  7. PANTOPRAZOLE SODIUM. [Concomitant]
     Active Substance: PANTOPRAZOLE SODIUM
  8. VITAMIN D2 [Concomitant]
     Active Substance: ERGOCALCIFEROL
  9. PYLERA [Concomitant]
     Active Substance: BISMUTH SUBCITRATE POTASSIUM\METRONIDAZOLE\TETRACYCLINE HYDROCHLORIDE
  10. ATRIPLA [Suspect]
     Active Substance: EFAVIRENZ\EMTRICITABINE\TENOFOVIR DISOPROXIL FUMARATE
     Indication: HIV INFECTION
     Dosage: UNK
     Route: 048
     Dates: start: 200601, end: 200701
  11. PROCRIT [Concomitant]
     Active Substance: ERYTHROPOIETIN
  12. VOLTAREN [DICLOFENAC] [Concomitant]
     Active Substance: DICLOFENAC SODIUM
  13. FAMOTIDINE. [Concomitant]
     Active Substance: FAMOTIDINE
  14. TRIUMEQ [Concomitant]
     Active Substance: ABACAVIR SULFATE\DOLUTEGRAVIR SODIUM\LAMIVUDINE
  15. CLINDAMYCIN. [Concomitant]
     Active Substance: CLINDAMYCIN
  16. HYDROCODONE BITARTRATE AND ACETAMINOPHEN [Concomitant]
     Active Substance: ACETAMINOPHEN\HYDROCODONE BITARTRATE
  17. DARAPRIM [Concomitant]
     Active Substance: PYRIMETHAMINE
  18. LEVETIRACETAM. [Concomitant]
     Active Substance: LEVETIRACETAM
  19. OXYCODONE HYDROCHLORIDE. [Concomitant]
     Active Substance: OXYCODONE HYDROCHLORIDE
  20. LORAZEPAM. [Concomitant]
     Active Substance: LORAZEPAM
  21. TRAMADOL + ACETAMINOFEN [Concomitant]
     Active Substance: ACETAMINOPHEN\TRAMADOL
  22. GABAPENTIN. [Concomitant]
     Active Substance: GABAPENTIN
  23. SULFADIAZINE. [Concomitant]
     Active Substance: SULFADIAZINE
  24. ALPRAZOLAM. [Concomitant]
     Active Substance: ALPRAZOLAM
  25. INSULIN [Concomitant]
     Active Substance: INSULIN NOS
  26. BUTALB/ACET/CAFFEINE [Concomitant]
  27. COMBIVENT [Concomitant]
     Active Substance: ALBUTEROL SULFATE\IPRATROPIUM BROMIDE
  28. NABUMETONE. [Concomitant]
     Active Substance: NABUMETONE
  29. METHADONE HCL [Concomitant]
     Active Substance: METHADONE HYDROCHLORIDE
  30. NAPROXEN. [Concomitant]
     Active Substance: NAPROXEN
  31. PROAIR HFA [Concomitant]
     Active Substance: ALBUTEROL SULFATE
  32. GUAIFENESIN + CODEINE [Concomitant]
  33. AZITHROMYCIN ANHYDROUS. [Concomitant]
     Active Substance: AZITHROMYCIN ANHYDROUS
  34. GENVOYA [Concomitant]
     Active Substance: COBICISTAT\ELVITEGRAVIR\EMTRICITABINE\TENOFOVIR ALAFENAMIDE FUMARATE
  35. ISENTRESS [Concomitant]
     Active Substance: RALTEGRAVIR POTASSIUM
  36. NORVIR [Concomitant]
     Active Substance: RITONAVIR
  37. ACYCLOVIR [ACICLOVIR] [Concomitant]
     Active Substance: ACYCLOVIR
  38. CELEBREX [Concomitant]
     Active Substance: CELECOXIB
  39. CYANOCOBALAMIN. [Concomitant]
     Active Substance: CYANOCOBALAMIN
  40. PREDNISONE. [Concomitant]
     Active Substance: PREDNISONE
  41. IMIPRAMINE [Concomitant]
     Active Substance: IMIPRAMINE
  42. SERVAMOX CLV [Concomitant]
  43. DOXYCYCLINE. [Concomitant]
     Active Substance: DOXYCYCLINE
  44. VENLAFAXINE HCL [Concomitant]
     Active Substance: VENLAFAXINE HYDROCHLORIDE
  45. ONDANSETRON [Concomitant]
     Active Substance: ONDANSETRON
  46. CYCLOBENZAPRINE. [Concomitant]
     Active Substance: CYCLOBENZAPRINE
  47. CLARITHROMYCIN. [Concomitant]
     Active Substance: CLARITHROMYCIN
  48. TRUVADA [Suspect]
     Active Substance: EMTRICITABINE\TENOFOVIR DISOPROXIL FUMARATE
     Indication: HIV INFECTION
     Dosage: UNK
     Route: 048
     Dates: start: 200901, end: 201501
  49. TRUVADA [Suspect]
     Active Substance: EMTRICITABINE\TENOFOVIR DISOPROXIL FUMARATE
     Dosage: UNK
     Route: 048
     Dates: start: 20100606, end: 20150325
  50. POLYSACCHARIDE IRON [Concomitant]
  51. METHOCARBAMOL. [Concomitant]
     Active Substance: METHOCARBAMOL
  52. OXAPROZIN. [Concomitant]
     Active Substance: OXAPROZIN
  53. METRONIDAZOLE. [Concomitant]
     Active Substance: METRONIDAZOLE
  54. LEUCOVORIN CALCIUM. [Concomitant]
     Active Substance: LEUCOVORIN CALCIUM
  55. PROMETHAZINE [Concomitant]
     Active Substance: PROMETHAZINE HYDROCHLORIDE
  56. REYATAZ [Concomitant]
     Active Substance: ATAZANAVIR SULFATE
  57. BUSPIRONE HCL [Concomitant]
     Active Substance: BUSPIRONE HYDROCHLORIDE
  58. MORPHINE SULF [Concomitant]
     Active Substance: MORPHINE SULFATE
  59. LIDODERM [Concomitant]
     Active Substance: LIDOCAINE

REACTIONS (8)
  - Tooth loss [Recovered/Resolved]
  - Bone density decreased [Unknown]
  - Pain [Unknown]
  - Anhedonia [Unknown]
  - Economic problem [Unknown]
  - Emotional distress [Unknown]
  - Osteoporosis [Recovered/Resolved]
  - Anxiety [Unknown]

NARRATIVE: CASE EVENT DATE: 201601
